FAERS Safety Report 9705115 (Version 1)
Quarter: 2013Q4

REPORT INFORMATION
  Report Type: Spontaneous
  Country: IT (occurrence: IT)
  Receive Date: 20131122
  Receipt Date: 20131122
  Transmission Date: 20140711
  Serious: Yes (Other)
  Sender: FDA-Public Use
  Company Number: IT-AMGEN-ITASP2013082187

PATIENT
  Age: 65 Year
  Sex: Female

DRUGS (1)
  1. ENBREL [Suspect]
     Indication: PSORIASIS
     Dosage: 50 MG, EVERY 8 DAYS
     Route: 058
     Dates: start: 201207

REACTIONS (2)
  - Haemorrhage [Not Recovered/Not Resolved]
  - Local swelling [Not Recovered/Not Resolved]
